FAERS Safety Report 19120580 (Version 1)
Quarter: 2021Q2

REPORT INFORMATION
  Report Type: Spontaneous
  Country: AE (occurrence: AE)
  Receive Date: 20210410
  Receipt Date: 20210410
  Transmission Date: 20210717
  Serious: Yes (Other)
  Sender: FDA-Public Use
  Company Number: None

PATIENT
  Age: 53 Year
  Sex: Female
  Weight: 47 kg

DRUGS (4)
  1. TRILUMA [Suspect]
     Active Substance: HYDROQUINONE
     Indication: SKIN DISORDER
     Dosage: ?          QUANTITY:30 TOPICAL CREAM;?
     Route: 061
     Dates: start: 20181205, end: 20210408
  2. BIOSIL VITAMINS [Concomitant]
  3. TRILUMA [Suspect]
     Active Substance: HYDROQUINONE
  4. TRILUMA [Suspect]
     Active Substance: HYDROQUINONE

REACTIONS (4)
  - Urticaria [None]
  - Dermatitis [None]
  - Hypersensitivity [None]
  - Stress [None]

NARRATIVE: CASE EVENT DATE: 20181205
